FAERS Safety Report 11169548 (Version 2)
Quarter: 2015Q3

REPORT INFORMATION
  Report Type: Spontaneous
  Country: FR (occurrence: FR)
  Receive Date: 20150605
  Receipt Date: 20150819
  Transmission Date: 20151125
  Serious: Yes (Other)
  Sender: FDA-Public Use
  Company Number: FR-ASTRAZENECA-2015SE54448

PATIENT
  Age: 21202 Day
  Sex: Female

DRUGS (7)
  1. TRIATEC [Concomitant]
     Active Substance: RAMIPRIL
     Route: 048
  2. BRILIQUE [Suspect]
     Active Substance: TICAGRELOR
     Indication: ANGIOPLASTY
     Route: 048
     Dates: start: 20150320
  3. KARDEGIC [Suspect]
     Active Substance: ASPIRIN LYSINE
     Indication: ANGIOPLASTY
     Route: 048
     Dates: start: 20150320, end: 20150421
  4. TAHOR [Concomitant]
     Active Substance: ATORVASTATIN CALCIUM
     Route: 048
  5. INEXIUM [Concomitant]
     Active Substance: ESOMEPRAZOLE
     Route: 048
  6. AMAREL [Concomitant]
     Active Substance: GLIMEPIRIDE
     Route: 048
  7. TENORMIN [Concomitant]
     Active Substance: ATENOLOL
     Route: 048

REACTIONS (4)
  - Visual acuity reduced [Unknown]
  - Retinal vein occlusion [Unknown]
  - Retinal artery occlusion [Unknown]
  - Drug ineffective [Unknown]

NARRATIVE: CASE EVENT DATE: 20150404
